FAERS Safety Report 6666842-7 (Version None)
Quarter: 2010Q2

REPORT INFORMATION
  Report Type: 
  Country: None (occurrence: None)
  Receive Date: 20100401
  Receipt Date: 20100401
  Transmission Date: 20101027
  Serious: Yes (Hospitalization)
  Sender: FDA-Public Use
  Company Number: None

PATIENT
  Age: 67 Year
  Sex: Male
  Weight: 97.5 kg

DRUGS (2)
  1. CARVEDILOL [Suspect]
     Indication: CARDIAC FAILURE CONGESTIVE
     Dosage: 6.25 MG BID PO
     Route: 048
     Dates: start: 20091109, end: 20100330
  2. RESERPINE [Suspect]
     Indication: HYPERTENSION
     Dosage: 0.25 MG BID PO
     Route: 048
     Dates: start: 20091209, end: 20100330

REACTIONS (1)
  - BRADYCARDIA [None]
